FAERS Safety Report 6213723-9 (Version None)
Quarter: 2009Q2

REPORT INFORMATION
  Report Type: 
  Country: None (occurrence: None)
  Receive Date: 20090602
  Receipt Date: 20090513
  Transmission Date: 20091009
  Serious: Yes (Hospitalization)
  Sender: FDA-Public Use
  Company Number: WAES 0905USA02310

PATIENT
  Age: 58 Year
  Sex: Male

DRUGS (5)
  1. PRINZIDE [Suspect]
     Dosage: PO
     Route: 048
     Dates: start: 20081027, end: 20090326
  2. DAPAGLIFLOZIN [Suspect]
     Indication: TYPE 2 DIABETES MELLITUS
     Dosage: PO
     Route: 048
     Dates: start: 20080226
  3. PLACEBO (UNSPECIFIED) UNK [Suspect]
     Indication: TYPE 2 DIABETES MELLITUS
     Dosage: PO
     Route: 048
     Dates: start: 20080226
  4. SINGULAIR [Concomitant]
  5. METFORMIN HYDROCHLORIDE [Concomitant]

REACTIONS (8)
  - ANGIOEDEMA [None]
  - BLOOD GLUCOSE INCREASED [None]
  - DYSPNOEA [None]
  - FIBRIN D DIMER INCREASED [None]
  - HAEMOGLOBIN DECREASED [None]
  - PULMONARY MASS [None]
  - THROAT TIGHTNESS [None]
  - WHITE BLOOD CELL COUNT INCREASED [None]
